FAERS Safety Report 8537159-0 (Version None)
Quarter: 2012Q3

REPORT INFORMATION
  Report Type: 
  Country: None (occurrence: None)
  Receive Date: 20120725
  Receipt Date: 20120716
  Transmission Date: 20120928
  Serious: Yes (Hospitalization)
  Sender: FDA-Public Use
  Company Number: FR-ASTRAZENECA-2012SE45352

PATIENT
  Age: 22367 Day
  Sex: Female

DRUGS (14)
  1. ABILIFY [Suspect]
     Route: 048
  2. HALDOL [Suspect]
     Route: 048
  3. SEROQUEL [Suspect]
     Indication: SCHIZOPHRENIA
     Route: 048
  4. ARANESP [Suspect]
     Route: 058
  5. OMEPRAZOLE [Concomitant]
  6. ASPIRIN [Concomitant]
  7. SPIRIVA [Concomitant]
  8. RENAGEL [Concomitant]
  9. REPAGLINIDE [Concomitant]
  10. BICARBONATE [Concomitant]
  11. AMLODIPINE BESYLATE [Concomitant]
  12. IRBESARTAN [Concomitant]
  13. LASIX [Concomitant]
  14. BRONCHODUAL [Concomitant]

REACTIONS (1)
  - PULMONARY EMBOLISM [None]
